FAERS Safety Report 5854309-5 (Version None)
Quarter: 2008Q3

REPORT INFORMATION
  Report Type: 
  Country: None (occurrence: None)
  Receive Date: 20080822
  Receipt Date: 20080812
  Transmission Date: 20090109
  Serious: No
  Sender: FDA-Public Use
  Company Number: US-ROCHE-578822

PATIENT
  Sex: Female

DRUGS (3)
  1. ISOTRETINOIN [Suspect]
     Indication: DRUG USE FOR UNKNOWN INDICATION
     Dosage: THE PATIENT WAS DISPENSED ACCUTANE 40 MG CAPSULE ON 13 MAY 2008 AND STARTED THERAPY
     Route: 065
     Dates: start: 20080513, end: 20080612
  2. CLARAVIS [Suspect]
     Indication: DRUG USE FOR UNKNOWN INDICATION
     Dosage: DISPENSED CLARAVIS ON 15 FEBRUARY 2008, 17 MARCH 2008 AND 12 APRIL 2008.
     Route: 065
     Dates: start: 20080215
  3. NUVARING [Concomitant]
     Indication: CONTRACEPTION

REACTIONS (1)
  - ABORTION INDUCED [None]
